FAERS Safety Report 6184917-6 (Version None)
Quarter: 2009Q2

REPORT INFORMATION
  Report Type: 
  Country: None (occurrence: None)
  Receive Date: 20090511
  Receipt Date: 20090430
  Transmission Date: 20091009
  Serious: Yes (Other)
  Sender: FDA-Public Use
  Company Number: GB-SP-2009-02060

PATIENT
  Age: 57 Year
  Sex: Male

DRUGS (3)
  1. IMMUCYST [Suspect]
     Indication: BLADDER CANCER
     Route: 043
     Dates: start: 20030501, end: 20040501
  2. IMMUCYST [Suspect]
     Route: 043
     Dates: start: 20030501, end: 20040501
  3. IMMUCYST [Suspect]
     Route: 043
     Dates: start: 20030501, end: 20040501

REACTIONS (3)
  - BLADDER CANCER RECURRENT [None]
  - CYSTITIS [None]
  - INCORRECT DOSE ADMINISTERED [None]
